FAERS Safety Report 7549170-7 (Version None)
Quarter: 2011Q2

REPORT INFORMATION
  Report Type: 
  Country: None (occurrence: None)
  Receive Date: 20110615
  Receipt Date: 20110531
  Transmission Date: 20111010
  Serious: Yes (Other)
  Sender: FDA-Public Use
  Company Number: PHHY2011US42341

PATIENT
  Sex: Female
  Weight: 61.224 kg

DRUGS (13)
  1. VESICARE [Concomitant]
  2. VITAMIN D [Concomitant]
  3. GILENYA [Suspect]
     Indication: RELAPSING-REMITTING MULTIPLE SCLEROSIS
     Dosage: 0.5 MG, QD
     Route: 048
     Dates: start: 20110412
  4. AMOXY [Concomitant]
  5. CITALOPRAM [Concomitant]
  6. RITALIN [Concomitant]
  7. SOLU-MEDROL [Concomitant]
     Indication: MULTIPLE SCLEROSIS RELAPSE
     Dosage: UNK UKN, UNK
  8. TYSABRI [Concomitant]
  9. BENADRYL [Concomitant]
  10. TRAZODONE HCL [Concomitant]
  11. MACROBID [Concomitant]
     Dosage: UNK UKN, OT
  12. PREDNISONE [Concomitant]
  13. TOBRAMYCIN [Concomitant]

REACTIONS (16)
  - VISUAL IMPAIRMENT [None]
  - CENTRAL NERVOUS SYSTEM LESION [None]
  - DYSPNOEA [None]
  - PARAESTHESIA [None]
  - HYPOAESTHESIA [None]
  - GAIT DISTURBANCE [None]
  - MULTIPLE SCLEROSIS RELAPSE [None]
  - ASTHENIA [None]
  - VISION BLURRED [None]
  - DYSPHAGIA [None]
  - MEMORY IMPAIRMENT [None]
  - FATIGUE [None]
  - CONFUSIONAL STATE [None]
  - CHEST DISCOMFORT [None]
  - SINUSITIS [None]
  - COGNITIVE DISORDER [None]
